FAERS Safety Report 4442421-7 (Version None)
Quarter: 2004Q3

REPORT INFORMATION
  Report Type: 
  Country: None (occurrence: None)
  Receive Date: 20040903
  Receipt Date: 20040706
  Transmission Date: 20050211
  Serious: Yes (Other)
  Sender: FDA-Public Use
  Company Number: 2004UW13841

PATIENT
  Age: 66 Year
  Sex: Female
  Weight: 68.4932 kg

DRUGS (6)
  1. CRESTOR [Suspect]
     Indication: BLOOD CHOLESTEROL INCREASED
     Dosage: 10 MG PO
     Route: 048
     Dates: start: 20040401
  2. WATER PILLS [Concomitant]
  3. COUMADIN [Concomitant]
  4. ACCUPRIL [Concomitant]
  5. COREG [Concomitant]
  6. METFORMIN HCL [Concomitant]

REACTIONS (4)
  - ASTHENIA [None]
  - DIABETES MELLITUS [None]
  - DRUG LEVEL FLUCTUATING [None]
  - PAIN IN EXTREMITY [None]
